FAERS Safety Report 6521133-X (Version None)
Quarter: 2009Q4

REPORT INFORMATION
  Report Type: 
  Country: None (occurrence: None)
  Receive Date: 20091222
  Receipt Date: 20091214
  Transmission Date: 20100525
  Serious: Yes (Other)
  Sender: FDA-Public Use
  Company Number: 002514

PATIENT
  Sex: Female
  Weight: 63.5 kg

DRUGS (8)
  1. OMEPRAZOLE [Suspect]
     Indication: DYSPEPSIA
     Dosage: (20 MG DAILY ORAL)
     Route: 048
     Dates: start: 20091015, end: 20091001
  2. OMEPRAZOLE [Suspect]
     Indication: GASTRIC DISORDER
     Dosage: (20 MG DAILY ORAL)
     Route: 048
     Dates: start: 20091015, end: 20091001
  3. LEVOTHYROXINE SODIUM [Concomitant]
  4. UROXATRAL [Concomitant]
  5. VITAMIN B /90046501/ [Concomitant]
  6. VITAMIN C /00008001/ [Concomitant]
  7. VITAMIN E /00110501/ [Concomitant]
  8. TYLENOL (CAPLET) [Concomitant]

REACTIONS (5)
  - CAPSULE ISSUE [None]
  - DYSPHAGIA [None]
  - NAUSEA [None]
  - PHARYNGEAL NEOPLASM [None]
  - PRODUCT QUALITY ISSUE [None]
